FAERS Safety Report 10481535 (Version 2)
Quarter: 2014Q3

REPORT INFORMATION
  Report Type: Report from Study
  Country: US (occurrence: US)
  Receive Date: 20140929
  Receipt Date: 20140929
  Transmission Date: 20150326
  Serious: Yes (Other)
  Sender: FDA-Public Use
  Company Number: US-ALEXION PHARMACEUTICALS INC-A201002300

PATIENT

DRUGS (1)
  1. SOLIRIS [Suspect]
     Active Substance: ECULIZUMAB
     Indication: PAROXYSMAL NOCTURNAL HAEMOGLOBINURIA

REACTIONS (13)
  - Urinary tract infection [Recovered/Resolved]
  - Haemoglobin decreased [Unknown]
  - Hip deformity [Unknown]
  - Haemoglobinuria [Unknown]
  - Dyspnoea [Unknown]
  - Quality of life decreased [Unknown]
  - Palpitations [Unknown]
  - Full blood count decreased [Unknown]
  - Iron deficiency [Unknown]
  - Gait disturbance [Unknown]
  - Muscle strain [Recovered/Resolved]
  - Fatigue [Unknown]
  - Asthenia [Unknown]
